FAERS Safety Report 15724426 (Version 1)
Quarter: 2018Q4

REPORT INFORMATION
  Report Type: Spontaneous
  Country: US (occurrence: US)
  Receive Date: 20181214
  Receipt Date: 20181214
  Transmission Date: 20190205
  Serious: Yes (Death, Hospitalization)
  Sender: FDA-Public Use
  Company Number: US-CORCEPT THERAPEUTICS INC.-US-2018CRT001370

PATIENT

DRUGS (1)
  1. KORLYM [Suspect]
     Active Substance: MIFEPRISTONE
     Indication: CUSHING^S SYNDROME
     Dosage: 300 MG, QD
     Route: 048
     Dates: start: 20181127, end: 20181130

REACTIONS (4)
  - Fungal sepsis [Not Recovered/Not Resolved]
  - Product use issue [Unknown]
  - Megacolon [Fatal]
  - Post procedural complication [Unknown]

NARRATIVE: CASE EVENT DATE: 201811
